FAERS Safety Report 5171427-8 (Version None)
Quarter: 2006Q4

REPORT INFORMATION
  Report Type: 
  Country: None (occurrence: None)
  Receive Date: 20061213
  Receipt Date: 20060324
  Transmission Date: 20070319
  Serious: Yes (Other)
  Sender: FDA-Public Use
  Company Number: US-AMGEN-STX173707

PATIENT
  Sex: Male

DRUGS (3)
  1. ENBREL [Suspect]
     Indication: PSORIASIS
     Route: 058
     Dates: start: 20040301
  2. CORTICOSTEROIDS [Concomitant]
     Route: 061
  3. PSORALEN [Concomitant]

REACTIONS (1)
  - PROSTATE CANCER [None]
